FAERS Safety Report 9935488 (Version 1)
Quarter: 2014Q1

REPORT INFORMATION
  Report Type: Spontaneous
  Country: DK (occurrence: FR)
  Receive Date: 20140228
  Receipt Date: 20140228
  Transmission Date: 20141002
  Serious: Yes (Hospitalization)
  Sender: FDA-Public Use
  Company Number: FR-FRI-1000054678

PATIENT
  Sex: Male
  Weight: 100 kg

DRUGS (3)
  1. ESCITALOPRAM [Suspect]
     Indication: AFFECTIVE DISORDER
     Route: 048
  2. KARDEGIC [Suspect]
     Route: 048
  3. CALCITE [Suspect]

REACTIONS (2)
  - Haematoma [Recovered/Resolved]
  - Red blood cell count decreased [Recovered/Resolved]
